FAERS Safety Report 23135542 (Version 5)
Quarter: 2023Q4

REPORT INFORMATION
  Report Type: Spontaneous
  Country: US (occurrence: US)
  Receive Date: 20231101
  Receipt Date: 20231205
  Transmission Date: 20240109
  Serious: Yes (Hospitalization, Other)
  Sender: FDA-Public Use
  Company Number: US-GILEAD-2023-0649045

PATIENT
  Sex: Male

DRUGS (3)
  1. EPCLUSA [Suspect]
     Active Substance: SOFOSBUVIR\VELPATASVIR
     Indication: Chronic hepatitis C
     Dosage: TAKE 1 TABLET BY MOUTH ONCE DAILY
     Route: 048
  2. MIRTAZAPINE [Concomitant]
     Active Substance: MIRTAZAPINE
  3. HYDROXYZINE HYDROCHLORIDE [Concomitant]
     Active Substance: HYDROXYZINE HYDROCHLORIDE

REACTIONS (2)
  - Pancreatitis [Recovered/Resolved with Sequelae]
  - Intentional dose omission [Unknown]
